FAERS Safety Report 20383421 (Version 2)
Quarter: 2022Q3

REPORT INFORMATION
  Report Type: Spontaneous
  Country: JP (occurrence: JP)
  Receive Date: 20220127
  Receipt Date: 20220926
  Transmission Date: 20221027
  Serious: Yes (Hospitalization)
  Sender: FDA-Public Use
  Company Number: JP-BAYER-2022A012179

PATIENT

DRUGS (1)
  1. ADEMPAS [Suspect]
     Active Substance: RIOCIGUAT
     Indication: Pulmonary arterial hypertension
     Dosage: 0.5 MG, TID
     Route: 048
     Dates: start: 202111

REACTIONS (1)
  - Pulmonary arterial hypertension [Not Recovered/Not Resolved]
